FAERS Safety Report 5268370-2 (Version None)
Quarter: 2007Q1

REPORT INFORMATION
  Report Type: 
  Country: None (occurrence: None)
  Receive Date: 20070313
  Receipt Date: 20070226
  Transmission Date: 20070707
  Serious: Yes (Life-Threatening, Hospitalization)
  Sender: FDA-Public Use
  Company Number: T200700203

PATIENT
  Age: 57 Year
  Sex: Female

DRUGS (1)
  1. OPTIRAY( IOVERSOL) SOLUTION FOR INJECTION, 320 [Suspect]
     Indication: COMPUTERISED TOMOGRAM THORAX
     Dosage: 75 ML, SINGLE, INTRAVENOUS
     Route: 042
     Dates: start: 20070214, end: 20070214

REACTIONS (2)
  - ANAPHYLACTIC SHOCK [None]
  - CONTRAST MEDIA REACTION [None]
